FAERS Safety Report 9790673 (Version 2)
Quarter: 2014Q1

REPORT INFORMATION
  Report Type: Spontaneous
  Country: US (occurrence: US)
  Receive Date: 20131231
  Receipt Date: 20140305
  Transmission Date: 20141002
  Serious: Yes (Death)
  Sender: FDA-Public Use
  Company Number: US-BRISTOL-MYERS SQUIBB COMPANY-19927417

PATIENT
  Age: 95 Year
  Sex: Female

DRUGS (2)
  1. COUMADIN [Suspect]
     Indication: MYOCARDIAL INFARCTION
  2. WARFARIN SODIUM [Suspect]
     Indication: MYOCARDIAL INFARCTION

REACTIONS (2)
  - Myocardial infarction [Fatal]
  - International normalised ratio fluctuation [Unknown]
